FAERS Safety Report 5835355-4 (Version None)
Quarter: 2008Q3

REPORT INFORMATION
  Report Type: 
  Country: None (occurrence: None)
  Receive Date: 20080806
  Receipt Date: 20080731
  Transmission Date: 20090109
  Serious: Yes (Other)
  Sender: FDA-Public Use
  Company Number: US-WATSON-2008-04633

PATIENT
  Age: 33 Year
  Sex: Male

DRUGS (1)
  1. PREDNISONE (WATSON LABORATORIES) [Suspect]
     Indication: RENAL DISORDER
     Dosage: 10 MG, 4 TIMES A DAY
     Route: 048

REACTIONS (2)
  - MYCOSIS FUNGOIDES [None]
  - SKIN CANCER [None]
